FAERS Safety Report 10595881 (Version 2)
Quarter: 2014Q4

REPORT INFORMATION
  Report Type: Spontaneous
  Country: US (occurrence: US)
  Receive Date: 20141120
  Receipt Date: 20141224
  Transmission Date: 20150529
  Serious: Yes (Other)
  Sender: FDA-Public Use
  Company Number: US-PFIZER INC-2014312949

PATIENT
  Age: 66 Year
  Sex: Male

DRUGS (1)
  1. ADVIL [Suspect]
     Active Substance: IBUPROFEN
     Indication: MUSCULOSKELETAL PAIN
     Dosage: 2 CAPSULES, UNK

REACTIONS (2)
  - Nasal discharge discolouration [Recovered/Resolved]
  - Foreign body aspiration [Recovered/Resolved]

NARRATIVE: CASE EVENT DATE: 20141109
